FAERS Safety Report 21057440 (Version 6)
Quarter: 2022Q3

REPORT INFORMATION
  Report Type: Spontaneous
  Country: CA (occurrence: CA)
  Receive Date: 20220708
  Receipt Date: 20220927
  Transmission Date: 20221027
  Serious: Yes (Other)
  Sender: FDA-Public Use
  Company Number: CA-PFIZER INC-202200602621

PATIENT
  Age: 58 Year
  Sex: Female

DRUGS (4)
  1. ABRILADA [Suspect]
     Active Substance: ADALIMUMAB-AFZB
     Indication: Crohn^s disease
     Dosage: EVERY 7 DAYS
     Route: 058
     Dates: start: 20220606
  2. ABRILADA [Suspect]
     Active Substance: ADALIMUMAB-AFZB
     Dosage: EVERY 7 DAYS
     Route: 058
     Dates: start: 20220620
  3. ABRILADA [Suspect]
     Active Substance: ADALIMUMAB-AFZB
     Dosage: EVERY 7 DAYS
     Route: 058
     Dates: start: 20220628
  4. ABRILADA [Suspect]
     Active Substance: ADALIMUMAB-AFZB
     Dosage: EVERY 7 DAYS
     Route: 058
     Dates: start: 20220801

REACTIONS (11)
  - Condition aggravated [Unknown]
  - Haematochezia [Not Recovered/Not Resolved]
  - Haemorrhoids [Unknown]
  - Pruritus [Unknown]
  - Blood pressure increased [Unknown]
  - Anxiety [Unknown]
  - Complication associated with device [Unknown]
  - Device difficult to use [Unknown]
  - Drug dose omission by device [Unknown]
  - Off label use [Unknown]
  - Off label use [Unknown]

NARRATIVE: CASE EVENT DATE: 20220601
